FAERS Safety Report 7888641-0 (Version None)
Quarter: 2011Q4

REPORT INFORMATION
  Report Type: 
  Country: None (occurrence: None)
  Receive Date: 20111103
  Receipt Date: 20111027
  Transmission Date: 20120403
  Serious: Yes (Hospitalization, Other)
  Sender: FDA-Public Use
  Company Number: US-SANOFI-AVENTIS-2011SA071756

PATIENT
  Age: 33 Year
  Sex: Female

DRUGS (2)
  1. LANTUS [Suspect]
     Route: 058
  2. NOVOLOG [Suspect]
     Route: 058

REACTIONS (3)
  - LOSS OF CONSCIOUSNESS [None]
  - PAIN [None]
  - BLOOD GLUCOSE INCREASED [None]
